FAERS Safety Report 8391882-X (Version None)
Quarter: 2012Q2

REPORT INFORMATION
  Report Type: 
  Country: None (occurrence: None)
  Receive Date: 20120529
  Receipt Date: 20120517
  Transmission Date: 20120825
  Serious: Yes (Other)
  Sender: FDA-Public Use
  Company Number: US-VIIV HEALTHCARE LIMITED-A0978808A

PATIENT
  Age: 47 Year
  Sex: Male

DRUGS (6)
  1. EPZICOM [Suspect]
     Indication: HIV INFECTION
     Route: 065
  2. REYATAZ [Suspect]
     Indication: HIV INFECTION
     Route: 065
  3. SELZENTRY [Suspect]
     Indication: HIV INFECTION
     Route: 065
  4. TESTIM [Suspect]
     Indication: BLOOD TESTOSTERONE DECREASED
     Dosage: 50MG PER DAY
     Route: 062
     Dates: start: 20101201, end: 20120101
  5. INTELENCE [Suspect]
     Indication: HIV INFECTION
     Route: 065
  6. TRUVADA [Suspect]
     Indication: HIV INFECTION
     Route: 065

REACTIONS (9)
  - EXERCISE TOLERANCE DECREASED [None]
  - MYOPATHY [None]
  - GAIT DISTURBANCE [None]
  - ASTHENIA [None]
  - MUSCULAR WEAKNESS [None]
  - MITOCHONDRIAL CYTOPATHY [None]
  - HEMIPARESIS [None]
  - BLOOD CREATINE PHOSPHOKINASE INCREASED [None]
  - MITOCHONDRIAL MYOPATHY ACQUIRED [None]
